FAERS Safety Report 16126126 (Version 5)
Quarter: 2022Q2

REPORT INFORMATION
  Report Type: Other
  Country: US (occurrence: None)
  Receive Date: 20190328
  Receipt Date: 20220519
  Transmission Date: 20220720
  Serious: Yes (Other)
  Sender: FDA-Public Use
  Company Number: US-ROCHE-2284644

PATIENT
  Sex: Male
  Weight: 61.290 kg

DRUGS (4)
  1. OCREVUS [Suspect]
     Active Substance: OCRELIZUMAB
     Indication: Secondary progressive multiple sclerosis
     Dosage: ONGOING : UNKNOWN
     Route: 042
     Dates: start: 20180910
  2. KEPPRA [Concomitant]
     Active Substance: LEVETIRACETAM
     Dosage: ONGOING : UNKNOWN
  3. NORCO [Concomitant]
     Active Substance: ACETAMINOPHEN\HYDROCODONE BITARTRATE
     Dosage: ONGOING : UNKNOWN
  4. HYDROCHLOROTHIAZIDE [Concomitant]
     Active Substance: HYDROCHLOROTHIAZIDE
     Dosage: ONGOING : UNKNOWN

REACTIONS (14)
  - Anaphylactic reaction [Unknown]
  - Therapeutic response shortened [Unknown]
  - Off label use [Unknown]
  - Fall [Unknown]
  - Joint instability [Recovered/Resolved]
  - Emphysema [Unknown]
  - Pain of skin [Unknown]
  - Skin exfoliation [Unknown]
  - Hyperhidrosis [Unknown]
  - Acne [Unknown]
  - Memory impairment [Not Recovered/Not Resolved]
  - Peroneal nerve palsy [Unknown]
  - JC polyomavirus test positive [Unknown]
  - JC virus infection [Not Recovered/Not Resolved]
